FAERS Safety Report 7424764-8 (Version None)
Quarter: 2011Q2

REPORT INFORMATION
  Report Type: 
  Country: None (occurrence: None)
  Receive Date: 20110419
  Receipt Date: 20110414
  Transmission Date: 20111010
  Serious: Yes (Other)
  Sender: FDA-Public Use
  Company Number: BR-PFIZER INC-2011061232

PATIENT
  Sex: Female
  Weight: 60 kg

DRUGS (9)
  1. CHAMPIX [Suspect]
     Indication: SMOKING CESSATION THERAPY
     Dosage: UNK
     Route: 048
     Dates: start: 20100101
  2. CHAMPIX [Suspect]
     Dosage: 0.5 MG, 1X/DAY
     Route: 048
  3. ESTRADERM [Concomitant]
     Dosage: UNK
  4. NPH INSULIN [Concomitant]
     Indication: DIABETES MELLITUS
     Dosage: UNK
  5. CAPTOPRIL [Concomitant]
     Dosage: UNK
  6. CHAMPIX [Suspect]
     Dosage: 0.5 MG, UNK
     Route: 048
     Dates: end: 20110401
  7. NOVORAPID [Concomitant]
     Indication: DIABETES MELLITUS
     Dosage: UNK
  8. CHAMPIX [Suspect]
     Dosage: 1 MG, 2X/DAY
     Route: 048
  9. RIVOTRIL [Concomitant]
     Dosage: UNK

REACTIONS (5)
  - HYPERPHAGIA [None]
  - CONSTIPATION [None]
  - NAUSEA [None]
  - WEIGHT INCREASED [None]
  - ANXIETY [None]
